FAERS Safety Report 9696078 (Version 2)
Quarter: 2014Q1

REPORT INFORMATION
  Report Type: Spontaneous
  Country: US (occurrence: US)
  Receive Date: 20131119
  Receipt Date: 20140101
  Transmission Date: 20141002
  Serious: No
  Sender: FDA-Public Use
  Company Number: US-B.I. PHARMACEUTICALS,INC./RIDGEFIELD-2013-BI-36423BP

PATIENT
  Age: 79 Year
  Sex: Female

DRUGS (5)
  1. PRADAXA [Suspect]
     Indication: HEART RATE IRREGULAR
     Dosage: 300 MG
     Route: 048
     Dates: start: 201210
  2. PRADAXA [Suspect]
     Indication: ATRIAL FIBRILLATION
  3. METOPROLOL [Concomitant]
     Indication: HYPERTENSION
  4. SIMVASTATIN [Concomitant]
     Indication: HYPERLIPIDAEMIA
  5. ALENDRONATE [Concomitant]
     Indication: OSTEOPOROSIS

REACTIONS (3)
  - Change of bowel habit [Not Recovered/Not Resolved]
  - Energy increased [Not Recovered/Not Resolved]
  - Off label use [Not Recovered/Not Resolved]
